FAERS Safety Report 18640407 (Version 2)
Quarter: 2020Q4

REPORT INFORMATION
  Report Type: Report from Study
  Country: None (occurrence: US)
  Receive Date: 20201221
  Receipt Date: 20201231
  Transmission Date: 20210114
  Serious: Yes (Death, Hospitalization, Other)
  Sender: FDA-Public Use
  Company Number: US-ABBVIE-20K-163-3643893-00

PATIENT
  Age: 85 Year
  Sex: Male
  Weight: 61.29 kg

DRUGS (2)
  1. HUMIRA [Suspect]
     Active Substance: ADALIMUMAB
     Indication: RHEUMATOID ARTHRITIS
     Route: 058
     Dates: start: 2017, end: 20201103
  2. HUMIRA [Suspect]
     Active Substance: ADALIMUMAB
     Indication: RHEUMATOID ARTHRITIS
     Route: 058
     Dates: start: 202010, end: 20201103

REACTIONS (13)
  - Death [Fatal]
  - Pneumonia [Fatal]
  - Fall [Fatal]
  - Endocarditis bacterial [Recovered/Resolved]
  - Asthenia [Fatal]
  - Bacteraemia [Recovered/Resolved]
  - Asthenia [Fatal]
  - Heart valve calcification [Not Recovered/Not Resolved]
  - Hypotension [Fatal]
  - Blindness [Not Recovered/Not Resolved]
  - Hypotension [Unknown]
  - Unresponsive to stimuli [Not Recovered/Not Resolved]
  - Bacteraemia [Fatal]

NARRATIVE: CASE EVENT DATE: 20201026
